FAERS Safety Report 5446160-5 (Version None)
Quarter: 2007Q3

REPORT INFORMATION
  Report Type: 
  Country: None (occurrence: None)
  Receive Date: 20070907
  Receipt Date: 20070824
  Transmission Date: 20080115
  Serious: Yes (Hospitalization)
  Sender: FDA-Public Use
  Company Number: GB-ELI_LILLY_AND_COMPANY-GB200708005958

PATIENT
  Age: 75 Year
  Sex: Female

DRUGS (1)
  1. XIGRIS [Suspect]
     Dosage: UNK, UNK
     Route: 042
     Dates: start: 20070823, end: 20070824

REACTIONS (1)
  - ACUTE MYOCARDIAL INFARCTION [None]
